FAERS Safety Report 21798614 (Version 1)
Quarter: 2022Q4

REPORT INFORMATION
  Report Type: Spontaneous
  Country: US (occurrence: None)
  Receive Date: 20221229
  Receipt Date: 20221229
  Transmission Date: 20230112
  Serious: Yes (Other)
  Sender: FDA-Public Use
  Company Number: None

PATIENT
  Age: 68 Year
  Sex: Male
  Weight: 94 kg

DRUGS (8)
  1. MEKINIST [Suspect]
     Active Substance: TRAMETINIB DIMETHYL SULFOXIDE
     Indication: Malignant melanoma
     Dosage: FREQUENCY : DAILY;?
     Route: 048
     Dates: start: 20221013
  2. TAFINLAR [Concomitant]
     Active Substance: DABRAFENIB MESYLATE
  3. MEMANTINE [Concomitant]
     Active Substance: MEMANTINE
  4. LISINOPRIL [Concomitant]
     Active Substance: LISINOPRIL
  5. TRAMADOL [Concomitant]
     Active Substance: TRAMADOL
  6. TAMSULOSIN [Concomitant]
     Active Substance: TAMSULOSIN
  7. ALLOPURINOL [Concomitant]
     Active Substance: ALLOPURINOL
  8. LEVETIRACETAM [Concomitant]
     Active Substance: LEVETIRACETAM

REACTIONS (2)
  - Rash [None]
  - Intentional product use issue [None]

NARRATIVE: CASE EVENT DATE: 20221215
